FAERS Safety Report 7465866-X (Version None)
Quarter: 2011Q2

REPORT INFORMATION
  Report Type: 
  Country: None (occurrence: None)
  Receive Date: 20110509
  Receipt Date: 20100423
  Transmission Date: 20111010
  Serious: No
  Sender: FDA-Public Use
  Company Number: US-ALEXION-A201000314

PATIENT
  Sex: Female

DRUGS (8)
  1. VITAMINS NOS [Suspect]
     Dosage: UNK
     Dates: start: 20100101, end: 20100301
  2. EPOGEN [Concomitant]
  3. SOLIRIS [Suspect]
     Dosage: 900 MG, Q2W
     Route: 042
     Dates: start: 20110511
  4. CYCLOSPORINE [Concomitant]
  5. ARANESP [Concomitant]
  6. SOLIRIS [Suspect]
     Dosage: 900 MG, Q12D
     Route: 042
  7. VITAMIN B12                        /00056201/ [Concomitant]
  8. SOLIRIS [Suspect]
     Indication: PAROXYSMAL NOCTURNAL HAEMOGLOBINURIA
     Dosage: 600 MG, QW
     Route: 042
     Dates: start: 20071018, end: 20071108

REACTIONS (4)
  - HAEMOLYSIS [None]
  - HAEMOGLOBIN DECREASED [None]
  - SWELLING FACE [None]
  - PALPITATIONS [None]
